FAERS Safety Report 9407838 (Version 3)
Quarter: 2013Q3

REPORT INFORMATION
  Report Type: Spontaneous
  Country: US (occurrence: US)
  Receive Date: 20130718
  Receipt Date: 20130807
  Transmission Date: 20140515
  Serious: Yes (Hospitalization)
  Sender: FDA-Public Use
  Company Number: US-BAYER-2013-084860

PATIENT
  Age: 50 Year
  Sex: Male
  Weight: 88 kg

DRUGS (8)
  1. ALEVE CAPLET [Suspect]
     Indication: ANALGESIC THERAPY
     Dosage: 1 DF, PRN
     Route: 048
     Dates: start: 2010, end: 201307
  2. LISINOPRIL [Concomitant]
  3. LASIX [Concomitant]
  4. POTASSIUM [Concomitant]
  5. METOPROLOL [Concomitant]
  6. IRON [Concomitant]
  7. AMLODIPINE [Concomitant]
  8. PRAVASTATIN [Concomitant]

REACTIONS (3)
  - Post procedural haemorrhage [Recovered/Resolved]
  - Presyncope [None]
  - Blood test abnormal [Unknown]
